FAERS Safety Report 16666994 (Version 1)
Quarter: 2019Q3

REPORT INFORMATION
  Report Type: Spontaneous
  Country: US (occurrence: US)
  Receive Date: 20190805
  Receipt Date: 20190805
  Transmission Date: 20191004
  Serious: No
  Sender: FDA-Public Use
  Company Number: US-AUROBINDO-AUR-APL-2019-031043

PATIENT

DRUGS (1)
  1. ROPIVACAINE HYDROCHLORIDE INJECTION USP 0.2% [Suspect]
     Active Substance: ROPIVACAINE HYDROCHLORIDE
     Indication: PRODUCT USED FOR UNKNOWN INDICATION
     Dosage: UNK
     Route: 065
     Dates: start: 20190520

REACTIONS (3)
  - Vomiting [Unknown]
  - Knee deformity [Unknown]
  - Nausea [Unknown]

NARRATIVE: CASE EVENT DATE: 20190520
